FAERS Safety Report 10040062 (Version 1)
Quarter: 2014Q1

REPORT INFORMATION
  Report Type: Spontaneous
  Country: US (occurrence: US)
  Receive Date: 20140326
  Receipt Date: 20140326
  Transmission Date: 20141002
  Serious: Yes (Hospitalization, Other)
  Sender: FDA-Public Use
  Company Number: US-JNJFOC-20140312851

PATIENT
  Age: 14 Year
  Sex: Female

DRUGS (1)
  1. INFLIXIMAB, RECOMBINANT [Suspect]
     Indication: CROHN^S DISEASE
     Dosage: INDUCTION DOSE
     Route: 042

REACTIONS (5)
  - Congestive cardiomyopathy [Unknown]
  - Gastrointestinal disorder [Recovered/Resolved]
  - Ascites [Recovered/Resolved]
  - Pericardial effusion [Unknown]
  - Shock [Unknown]
